FAERS Safety Report 6931452-0 (Version None)
Quarter: 2010Q3

REPORT INFORMATION
  Report Type: 
  Country: None (occurrence: None)
  Receive Date: 20100819
  Receipt Date: 20100809
  Transmission Date: 20110219
  Serious: No
  Sender: FDA-Public Use
  Company Number: US-ASTRAZENECA-2010SE37172

PATIENT
  Age: 13 Year
  Sex: Male

DRUGS (3)
  1. SEROQUEL XR [Suspect]
     Indication: ATTENTION DEFICIT/HYPERACTIVITY DISORDER
     Route: 048
     Dates: start: 20090101
  2. SEROQUEL XR [Suspect]
     Indication: DISSOCIATION
     Route: 048
     Dates: start: 20090101
  3. SEROQUEL XR [Suspect]
     Indication: ANXIETY DISORDER
     Route: 048
     Dates: start: 20090101

REACTIONS (1)
  - HAEMATOCRIT DECREASED [None]
